FAERS Safety Report 8541222-8 (Version None)
Quarter: 2012Q3

REPORT INFORMATION
  Report Type: 
  Country: None (occurrence: None)
  Receive Date: 20120726
  Receipt Date: 20120720
  Transmission Date: 20120928
  Serious: Yes (Hospitalization)
  Sender: FDA-Public Use
  Company Number: FR-PFIZER INC-2012175548

PATIENT
  Age: 64 Year
  Sex: Male

DRUGS (6)
  1. PERINDOPRIL ERBUMINE [Concomitant]
     Dosage: UNK
  2. BISOPROLOL FUMARATE [Concomitant]
     Dosage: 10 MG, UNK
  3. PLAVIX [Concomitant]
     Dosage: 75 MG, UNK
  4. ATORVASTATIN [Suspect]
     Dosage: UNK
     Route: 048
     Dates: end: 20120525
  5. PREVISCAN [Concomitant]
     Dosage: 20 MG, UNK
  6. LANSOPRAZOLE [Concomitant]
     Dosage: UNK

REACTIONS (1)
  - INTERSTITIAL LUNG DISEASE [None]
